FAERS Safety Report 7942874-3 (Version None)
Quarter: 2011Q4

REPORT INFORMATION
  Report Type: 
  Country: None (occurrence: None)
  Receive Date: 20111128
  Receipt Date: 20111122
  Transmission Date: 20120403
  Serious: Yes (Hospitalization, Other)
  Sender: FDA-Public Use
  Company Number: US-MERCK-1109USA01799

PATIENT
  Sex: Male
  Weight: 89 kg

DRUGS (1)
  1. ZOCOR [Suspect]
     Route: 048
     Dates: start: 20110101

REACTIONS (6)
  - FALL [None]
  - DEMENTIA [None]
  - OVERDOSE [None]
  - ASTHENIA [None]
  - ENCEPHALOPATHY [None]
  - RHABDOMYOLYSIS [None]
